FAERS Safety Report 17413818 (Version 1)
Quarter: 2020Q1

REPORT INFORMATION
  Report Type: Spontaneous
  Country: US (occurrence: US)
  Receive Date: 20200213
  Receipt Date: 20200213
  Transmission Date: 20200409
  Serious: Yes (Hospitalization)
  Sender: FDA-Public Use
  Company Number: None

PATIENT
  Age: 84 Year
  Sex: Male
  Weight: 69 kg

DRUGS (14)
  1. BRINZOLAMIDE/BRIMONIDINE 1-0.2% [Concomitant]
  2. CALCIUM POLYCARBOPHIL 625 MG [Concomitant]
  3. BENZONATATE 100 MG [Concomitant]
     Active Substance: BENZONATATE
  4. CHOLESTYRAMINE 4 GM [Concomitant]
  5. LOMOTIL 2.5/0.25 [Concomitant]
  6. LEVOTHYROXINE 150 MCG [Concomitant]
  7. TRAMADOL 50 MG [Concomitant]
     Active Substance: TRAMADOL
  8. DILTIAZEM 240 MG [Concomitant]
  9. PANTOPRAZOLE 40 MG [Concomitant]
     Active Substance: PANTOPRAZOLE SODIUM
  10. LATANOPROST 0.005% [Concomitant]
     Active Substance: LATANOPROST
  11. WARFARIN [Suspect]
     Active Substance: WARFARIN
     Route: 048
  12. ALLOPURINOL 150 MG [Concomitant]
  13. FERROUS SULFATE. [Concomitant]
     Active Substance: FERROUS SULFATE
  14. MULTIVITAMIN [Concomitant]
     Active Substance: VITAMINS

REACTIONS (3)
  - Muscle haemorrhage [None]
  - Abdominal wall haematoma [None]
  - International normalised ratio increased [None]

NARRATIVE: CASE EVENT DATE: 20190609
